FAERS Safety Report 12358465 (Version 1)
Quarter: 2016Q2

REPORT INFORMATION
  Report Type: Spontaneous
  Country: US (occurrence: None)
  Receive Date: 20160511
  Receipt Date: 20160511
  Transmission Date: 20160815
  Serious: Yes (Disabling, Other)
  Sender: FDA-Public Use
  Company Number: None

PATIENT
  Age: 81 Year
  Sex: Female
  Weight: 52.62 kg

DRUGS (3)
  1. DELTASONE [Suspect]
     Active Substance: PREDNISONE
     Indication: CHRONIC OBSTRUCTIVE PULMONARY DISEASE
     Route: 048
     Dates: start: 20150817, end: 20160121
  2. DELTASONE [Suspect]
     Active Substance: PREDNISONE
     Indication: EMPHYSEMA
     Route: 048
     Dates: start: 20150817, end: 20160121
  3. TEMAZEPAM. [Concomitant]
     Active Substance: TEMAZEPAM

REACTIONS (8)
  - Arthralgia [None]
  - Insomnia [None]
  - Fall [None]
  - Asthenia [None]
  - Pain in extremity [None]
  - Myalgia [None]
  - Weight decreased [None]
  - Peripheral swelling [None]

NARRATIVE: CASE EVENT DATE: 201510
